FAERS Safety Report 22204725 (Version 1)
Quarter: 2023Q2

REPORT INFORMATION
  Report Type: Other
  Country: US (occurrence: None)
  Receive Date: 20230413
  Receipt Date: 20230413
  Transmission Date: 20230721
  Serious: Yes (Other)
  Sender: FDA-Public Use
  Company Number: US-ROCHE-2263394

PATIENT
  Age: 66 Year
  Sex: Male
  Weight: 81.720 kg

DRUGS (18)
  1. OCREVUS [Suspect]
     Active Substance: OCRELIZUMAB
     Indication: Relapsing multiple sclerosis
     Dosage: DAY 1 THEN DAY 15 AND 600 MG Q6 MONTHS
     Route: 042
     Dates: start: 20180726
  2. OCREVUS [Suspect]
     Active Substance: OCRELIZUMAB
     Dosage: SPLIT DOSE
     Route: 042
     Dates: start: 20190131
  3. OCREVUS [Suspect]
     Active Substance: OCRELIZUMAB
     Route: 042
     Dates: start: 2017, end: 202002
  4. OCREVUS [Suspect]
     Active Substance: OCRELIZUMAB
     Dosage: LAST DATE OF TREATMENT: /FEB/2021
     Route: 042
  5. OCREVUS [Suspect]
     Active Substance: OCRELIZUMAB
     Dosage: LAST DATE OF TREATMENT: /FEB/2021 SHE HAD SUBSEQUENT DOSES ON 24/MAY/2022, 21/NOV/2022, 26/JUL/2018,
     Route: 042
     Dates: start: 2015
  6. BETAFERON [Concomitant]
     Active Substance: INTERFERON BETA-1B
     Indication: Multiple sclerosis
  7. ROQUINIMEX [Concomitant]
     Active Substance: ROQUINIMEX
     Indication: Multiple sclerosis
  8. AVONEX [Concomitant]
     Active Substance: INTERFERON BETA-1A
     Indication: Multiple sclerosis
  9. COPAXONE [Concomitant]
     Active Substance: GLATIRAMER ACETATE
     Indication: Multiple sclerosis
  10. GILENYA [Concomitant]
     Active Substance: FINGOLIMOD HYDROCHLORIDE
  11. BACLOFEN [Concomitant]
     Active Substance: BACLOFEN
     Indication: Muscle spasticity
     Dates: start: 198905
  12. BACLOFEN [Concomitant]
     Active Substance: BACLOFEN
     Dosage: 10MG TWICE DURING THE DAY AND 20MG AT NIGHT
  13. BACLOFEN [Concomitant]
     Active Substance: BACLOFEN
     Dosage: 10MG TWICE DURING THE DAY AND 20MG AT NIGHT
     Route: 048
     Dates: start: 1990
  14. AMANTADINE [Concomitant]
     Active Substance: AMANTADINE
     Indication: Fatigue
  15. PROVIGIL [Concomitant]
     Active Substance: MODAFINIL
     Indication: Fatigue
  16. SIMVASTATIN [Concomitant]
     Active Substance: SIMVASTATIN
     Indication: Blood cholesterol increased
     Route: 048
     Dates: start: 2000
  17. VITAMIN D3 [Concomitant]
     Active Substance: CHOLECALCIFEROL
  18. CLARITIN [Concomitant]
     Active Substance: LORATADINE
     Indication: Hypersensitivity

REACTIONS (18)
  - Thyroid mass [Not Recovered/Not Resolved]
  - Lymphocyte count decreased [Unknown]
  - Hypothyroidism [Not Recovered/Not Resolved]
  - Erectile dysfunction [Not Recovered/Not Resolved]
  - Off label use [Unknown]
  - B-lymphocyte count decreased [Not Recovered/Not Resolved]
  - Vitreous floaters [Recovered/Resolved]
  - Eye pain [Recovered/Resolved]
  - Conjunctivitis [Not Recovered/Not Resolved]
  - Macular oedema [Not Recovered/Not Resolved]
  - COVID-19 [Recovered/Resolved]
  - Fall [Unknown]
  - Rib fracture [Recovered/Resolved]
  - Panic attack [Recovered/Resolved]
  - Cataract [Not Recovered/Not Resolved]
  - Pulmonary hypertension [Unknown]
  - Bundle branch block [Unknown]
  - Vitreous detachment [Not Recovered/Not Resolved]

NARRATIVE: CASE EVENT DATE: 20220101
